FAERS Safety Report 7570425-4 (Version None)
Quarter: 2011Q2

REPORT INFORMATION
  Report Type: 
  Country: None (occurrence: None)
  Receive Date: 20110624
  Receipt Date: 20110316
  Transmission Date: 20111010
  Serious: No
  Sender: FDA-Public Use
  Company Number: US-ALLERGAN-1103735US

PATIENT
  Age: 44 Year
  Sex: Female

DRUGS (1)
  1. LATISSE [Suspect]
     Indication: HYPOTRICHOSIS
     Dosage: 1 GTT, PRN

REACTIONS (6)
  - SKIN CHAPPED [None]
  - WRONG TECHNIQUE IN DRUG USAGE PROCESS [None]
  - EYELID EXFOLIATION [None]
  - ERYTHEMA OF EYELID [None]
  - EYE PRURITUS [None]
  - EYELID DISORDER [None]
